FAERS Safety Report 7520507-8 (Version None)
Quarter: 2011Q2

REPORT INFORMATION
  Report Type: 
  Country: None (occurrence: None)
  Receive Date: 20110602
  Receipt Date: 20110526
  Transmission Date: 20111010
  Serious: Yes (Other)
  Sender: FDA-Public Use
  Company Number: CA-ELI_LILLY_AND_COMPANY-CA201105007581

PATIENT
  Age: 82 Year
  Sex: Male

DRUGS (2)
  1. TERAZOSIN HCL [Concomitant]
     Indication: BLOOD PRESSURE
     Dosage: 2 MG, UNK
  2. CIALIS [Suspect]
     Dosage: 20 MG, UNK

REACTIONS (2)
  - HEADACHE [None]
  - MYCOBACTERIUM AVIUM COMPLEX INFECTION [None]
